FAERS Safety Report 23751838 (Version 3)
Quarter: 2025Q1

REPORT INFORMATION
  Report Type: Spontaneous
  Country: US (occurrence: US)
  Receive Date: 20240417
  Receipt Date: 20250205
  Transmission Date: 20250409
  Serious: Yes (Life-Threatening, Hospitalization, Other)
  Sender: PFIZER
  Company Number: US-PFIZER INC-PV202400049465

PATIENT
  Age: 68 Year
  Sex: Female

DRUGS (3)
  1. ONDANSETRON [Suspect]
     Active Substance: ONDANSETRON
     Indication: Spinal laminectomy
  2. AMITRIPTYLINE HYDROCHLORIDE [Suspect]
     Active Substance: AMITRIPTYLINE HYDROCHLORIDE
     Indication: Spinal laminectomy
  3. TIZANIDINE [Suspect]
     Active Substance: TIZANIDINE
     Indication: Spinal laminectomy

REACTIONS (1)
  - Serotonin syndrome [Recovered/Resolved]
